FAERS Safety Report 7556225-X (Version None)
Quarter: 2011Q2

REPORT INFORMATION
  Report Type: 
  Country: None (occurrence: None)
  Receive Date: 20110615
  Receipt Date: 20110615
  Transmission Date: 20111010
  Serious: Yes (Other)
  Sender: FDA-Public Use
  Company Number: None

PATIENT
  Age: 44 Year
  Sex: Female
  Weight: 108.8633 kg

DRUGS (2)
  1. LOVAZA [Suspect]
     Indication: DYSLIPIDAEMIA
     Dates: start: 20110323, end: 20110603
  2. LOVAZA [Suspect]
     Indication: HYPERTRIGLYCERIDAEMIA
     Dates: start: 20110323, end: 20110603

REACTIONS (2)
  - OEDEMA [None]
  - DRUG INTOLERANCE [None]
